FAERS Safety Report 6206880-1 (Version None)
Quarter: 2009Q2

REPORT INFORMATION
  Report Type: 
  Country: None (occurrence: None)
  Receive Date: 20090528
  Receipt Date: 20090320
  Transmission Date: 20091009
  Serious: Yes (Disabling, Other)
  Sender: FDA-Public Use
  Company Number: NZ-AVENTIS-200910584GDDC

PATIENT
  Age: 57 Year
  Sex: Female

DRUGS (25)
  1. ARAVA [Suspect]
     Indication: RHEUMATOID ARTHRITIS
     Route: 048
     Dates: start: 20031114
  2. ASPIRIN [Concomitant]
  3. SERETIDE [Concomitant]
     Indication: ASTHMA
     Dosage: DOSE: UNK
  4. VENTOLIN [Concomitant]
     Indication: ASTHMA
  5. CANDESARTAN [Concomitant]
  6. VENLAFAXINE [Concomitant]
     Dosage: DOSE: 2 CAPSULES
  7. PREDNISONE [Concomitant]
     Dosage: DOSE: 1 TABLET
  8. BETALOC CR [Concomitant]
     Dosage: DOSE: 1 TABLET
  9. RISPERIDONE [Concomitant]
     Dosage: DOSE: 1 TABLET
  10. SALAZOPYRIN EN [Concomitant]
     Dosage: DOSE: 1 TABLET
  11. LOSEC                              /00661201/ [Concomitant]
     Dosage: DOSE: 1 CAPSULE
  12. METFORMIN HCL [Concomitant]
     Dosage: DOSE: 2 TABLETS
  13. MULTIVITE SIX [Concomitant]
     Dosage: DOSE: 1 TABLET
  14. COLOXYL WITH SENNA [Concomitant]
     Dosage: DOSE: 2 TABLETS
  15. CHOLECALCIFEROL [Concomitant]
     Dosage: DOSE: 1 TABLET
  16. SIMVASTATIN [Concomitant]
     Dosage: DOSE: 1 TABLET
  17. DHC-CONTINUS [Concomitant]
     Dosage: DOSE: 2 TABLETS
  18. ZOPICLONE [Concomitant]
     Dosage: DOSE: 1 TABLET
  19. INSULIN ISOPHANE [Concomitant]
     Route: 058
  20. INSULIN ISOPHANE [Concomitant]
     Route: 058
  21. PANADOL                            /00020001/ [Concomitant]
     Dosage: DOSE: 2 TABLETS
  22. DUOVENT [Concomitant]
     Dosage: DOSE: 1 RESPULE Q4H
     Route: 055
  23. HYDROCORTISONE CREAM [Concomitant]
     Dosage: DOSE: APPLY BID
  24. FLIXOTIDE NEBUL [Concomitant]
     Dosage: DOSE: 2 PUFFS
     Route: 055
  25. SEREVENT [Concomitant]
     Dosage: DOSE: 2 PUFFS
     Route: 055

REACTIONS (2)
  - CEREBROVASCULAR ACCIDENT [None]
  - HEMIPARESIS [None]
